FAERS Safety Report 8777107 (Version 1)
Quarter: 2012Q4

REPORT INFORMATION
  Report Type: 
  Country: US (occurrence: US)
  Receive Date: 20120911
  Receipt Date: 20120911
  Transmission Date: 20130627
  Serious: Yes (Death)
  Sender: FDA-Public Use
  Company Number: PHEH2012US017525

PATIENT
  Sex: Female

DRUGS (13)
  1. GLEEVEC [Suspect]
     Dosage: 400 mg, every day
     Route: 048
  2. SIMVASTATIN [Concomitant]
  3. NIFEDIPINE [Concomitant]
  4. DETROL [Concomitant]
  5. ASPIRIN [Concomitant]
  6. WARFARIN [Concomitant]
  7. RESTASIS [Concomitant]
  8. MULTI-VIT [Concomitant]
  9. METOPROLOL [Concomitant]
  10. XALATAN [Concomitant]
  11. TRACLEER [Concomitant]
  12. ADVAIR DISKUS [Concomitant]
  13. LASIX [Concomitant]

REACTIONS (1)
  - Death [Fatal]
